FAERS Safety Report 23888169 (Version 1)
Quarter: 2024Q2

REPORT INFORMATION
  Report Type: Spontaneous
  Country: CN (occurrence: None)
  Receive Date: 20240523
  Receipt Date: 20240523
  Transmission Date: 20240716
  Serious: Yes (Other)
  Sender: FDA-Public Use
  Company Number: CN-ROCHE-3568309

PATIENT
  Sex: Female
  Weight: 66.5 kg

DRUGS (8)
  1. PERJETA [Suspect]
     Active Substance: PERTUZUMAB
     Indication: Breast cancer
     Dosage: CYCLE 1- 4 OF TCB* 6- HP PROTOCOL
     Route: 065
  2. PERJETA [Suspect]
     Active Substance: PERTUZUMAB
     Dosage: CYCLE 5 OF TCB* 6- HP PROTOCOL
     Route: 041
     Dates: start: 20240502
  3. TRASTUZUMAB [Suspect]
     Active Substance: TRASTUZUMAB
     Indication: Breast cancer
     Dosage: CYCLE 1- 4 OF TCB* 6- HP PROTOCOL
     Route: 065
  4. CARBOPLATIN [Suspect]
     Active Substance: CARBOPLATIN
     Indication: Breast cancer
     Dosage: CYCLE 5 OF TCB* 6- HP PROTOCOL
     Route: 041
     Dates: start: 20240503
  5. CARBOPLATIN [Suspect]
     Active Substance: CARBOPLATIN
     Dosage: CYCLE 1- 4 OF TCB* 6- HP PROTOCOL
     Route: 041
  6. DOCETAXEL [Suspect]
     Active Substance: DOCETAXEL\DOCETAXEL ANHYDROUS
     Indication: Breast cancer
     Dosage: CYCLE 5 OF TCB* 6- HP PROTOCOL
     Route: 041
     Dates: start: 20240503
  7. DOCETAXEL [Suspect]
     Active Substance: DOCETAXEL\DOCETAXEL ANHYDROUS
     Dosage: CYCLE 1- 4 OF TCB* 6- HP PROTOCOL
     Route: 042
  8. TRASTUZUMAB [Suspect]
     Active Substance: TRASTUZUMAB
     Indication: Breast cancer
     Dosage: CYCLE 5 OF TCB* 6- HP PROTOCOL
     Route: 041
     Dates: start: 20240502

REACTIONS (2)
  - Myelosuppression [Unknown]
  - Decreased appetite [Unknown]

NARRATIVE: CASE EVENT DATE: 20240508
